FAERS Safety Report 8596414-9 (Version None)
Quarter: 2012Q3

REPORT INFORMATION
  Report Type: 
  Country: None (occurrence: None)
  Receive Date: 20120815
  Receipt Date: 20080522
  Transmission Date: 20120928
  Serious: Yes (Other)
  Sender: FDA-Public Use
  Company Number: CO-PFIZER INC-2012196972

PATIENT
  Age: 55 Year
  Sex: Female

DRUGS (3)
  1. CLONIDINE HYDROCHLORIDE [Concomitant]
     Dosage: 0.150 MG, 3X/DAY
  2. LIPITOR [Suspect]
     Indication: DYSLIPIDAEMIA
     Dosage: 10 MG, 1X/DAY
  3. NORVASC [Suspect]
     Indication: HYPERTENSION
     Dosage: 10 MG, 1X/DAY

REACTIONS (2)
  - CARDIAC FAILURE [None]
  - CHEST PAIN [None]
